FAERS Safety Report 9709220 (Version 1)
Quarter: 2013Q4

REPORT INFORMATION
  Report Type: Spontaneous
  Country: GB (occurrence: GB)
  Receive Date: 20131125
  Receipt Date: 20131125
  Transmission Date: 20140711
  Serious: Yes (Other)
  Sender: FDA-Public Use
  Company Number: PHHY2013GB133617

PATIENT
  Sex: 0

DRUGS (1)
  1. OMEPRAZOLE [Suspect]
     Dosage: 10 MG, BID
     Route: 048

REACTIONS (1)
  - Diverticulitis [Unknown]
